FAERS Safety Report 17033258 (Version 3)
Quarter: 2020Q4

REPORT INFORMATION
  Report Type: Spontaneous
  Country: US (occurrence: US)
  Receive Date: 20191114
  Receipt Date: 20201006
  Transmission Date: 20210113
  Serious: No
  Sender: FDA-Public Use
  Company Number: US-SA-2019SA310479

PATIENT

DRUGS (1)
  1. DUPIXENT [Suspect]
     Active Substance: DUPILUMAB
     Indication: ECZEMA
     Dosage: 300 MG
     Route: 058
     Dates: start: 201906

REACTIONS (6)
  - Conjunctivitis [Unknown]
  - Product dose omission issue [Unknown]
  - Visual impairment [Unknown]
  - Injection site dryness [Unknown]
  - Injection site swelling [Unknown]
  - Wrong technique in device usage process [Unknown]

NARRATIVE: CASE EVENT DATE: 2019
